FAERS Safety Report 24549013 (Version 1)
Quarter: 2024Q4

REPORT INFORMATION
  Report Type: Spontaneous
  Country: US (occurrence: US)
  Receive Date: 20241025
  Receipt Date: 20241025
  Transmission Date: 20250115
  Serious: No
  Sender: AVERITAS
  Company Number: US-GRUNENTHAL-2024-135430

PATIENT
  Sex: Male

DRUGS (3)
  1. QUTENZA [Suspect]
     Active Substance: CAPSAICIN
     Indication: Diabetic neuropathy
     Dosage: 2 DOSAGE FORM, ONCE
     Route: 061
     Dates: start: 20241023, end: 20241023
  2. QUTENZA [Suspect]
     Active Substance: CAPSAICIN
     Dosage: 2 DOSAGE FORM, ONCE
     Route: 061
     Dates: start: 20241023, end: 20241023
  3. CAPSAICIN [Concomitant]
     Active Substance: CAPSAICIN
     Indication: Diabetic neuropathy
     Dosage: UNK
     Route: 061
     Dates: start: 20241022

REACTIONS (2)
  - Application site pain [Unknown]
  - Product use issue [Unknown]

NARRATIVE: CASE EVENT DATE: 20241023
